FAERS Safety Report 5939392-0 (Version None)
Quarter: 2008Q4

REPORT INFORMATION
  Report Type: 
  Country: None (occurrence: None)
  Receive Date: 20081103
  Receipt Date: 20081023
  Transmission Date: 20090506
  Serious: Yes (Hospitalization)
  Sender: FDA-Public Use
  Company Number: GB-PFIZER INC-2008090138

PATIENT
  Sex: Female

DRUGS (5)
  1. GENOTROPIN [Suspect]
     Indication: HYPOPITUITARISM
     Route: 058
     Dates: start: 20010213
  2. OMEPRAZOLE [Concomitant]
     Dosage: DAILY DOSE:40MG
     Dates: start: 19930701
  3. HYDROCORTISONE [Concomitant]
     Dosage: DAILY DOSE:30MG
     Dates: start: 20030319
  4. PERINDOPRIL [Concomitant]
     Dosage: DAILY DOSE:2MG
     Dates: start: 20050101
  5. ACETYLSALICYLIC ACID SRT [Concomitant]
     Dosage: DAILY DOSE:75MG
     Dates: start: 20040308

REACTIONS (1)
  - RECTAL CANCER [None]
